FAERS Safety Report 5723516-4 (Version None)
Quarter: 2008Q2

REPORT INFORMATION
  Report Type: 
  Country: None (occurrence: None)
  Receive Date: 20080425
  Receipt Date: 20080409
  Transmission Date: 20081010
  Serious: Yes (Other)
  Sender: FDA-Public Use
  Company Number: DSJ-2008-04394

PATIENT
  Age: 66 Year
  Sex: Male

DRUGS (2)
  1. SALIGREN (CAPSULE) [Suspect]
     Indication: HEAD AND NECK CANCER
     Dosage: 90 MG, PER ORAL
     Route: 048
  2. CRAVIT (LEVOFLOXACIN) (LEVOFLOXACIN) [Suspect]
     Indication: DRUG USE FOR UNKNOWN INDICATION
     Dosage: PER ORAL
     Route: 048

REACTIONS (1)
  - LIVER DISORDER [None]
